FAERS Safety Report 5486674-5 (Version None)
Quarter: 2007Q4

REPORT INFORMATION
  Report Type: 
  Country: None (occurrence: None)
  Receive Date: 20071012
  Receipt Date: 20071002
  Transmission Date: 20080405
  Serious: Yes (Hospitalization)
  Sender: FDA-Public Use
  Company Number: 2005BI01089

PATIENT
  Age: 61 Year
  Sex: Female

DRUGS (2)
  1. AVONEX [Suspect]
     Indication: MULTIPLE SCLEROSIS
     Dosage: 30 UG; QW; IM
     Route: 030
     Dates: start: 20030801
  2. PREVACID [Concomitant]

REACTIONS (4)
  - DEHYDRATION [None]
  - DUODENAL ULCER [None]
  - GASTRIC ULCER [None]
  - PEPTIC ULCER [None]
